FAERS Safety Report 8307751 (Version 2)
Quarter: 2013Q4

REPORT INFORMATION
  Report Type: Spontaneous
  Country: US (occurrence: US)
  Receive Date: 20111222
  Receipt Date: 20131223
  Transmission Date: 20140711
  Serious: Yes (Other)
  Sender: FDA-Public Use
  Company Number: US-BAYER-2011-121520

PATIENT
  Age: 34 Year
  Sex: Female

DRUGS (3)
  1. YASMIN [Suspect]
     Dosage: UNK
     Dates: start: 200411, end: 200806
  2. PRIMACARE [Concomitant]
     Dosage: UNK
     Route: 048
     Dates: start: 20070125
  3. ZYRTEC [Concomitant]
     Indication: SEASONAL ALLERGY
     Dosage: UNK
     Route: 048
     Dates: start: 20070321

REACTIONS (6)
  - Gallbladder disorder [None]
  - Cholecystitis acute [None]
  - Pain [None]
  - Post cholecystectomy syndrome [None]
  - Injury [None]
  - Anxiety [None]
